FAERS Safety Report 25975639 (Version 3)
Quarter: 2025Q4

REPORT INFORMATION
  Report Type: Spontaneous
  Country: US (occurrence: US)
  Receive Date: 20251029
  Receipt Date: 20251209
  Transmission Date: 20260118
  Serious: Yes (Life-Threatening, Hospitalization)
  Sender: PFIZER
  Company Number: US-PFIZER INC-PV202500126486

PATIENT
  Age: 66 Year
  Sex: Female
  Weight: 89.796 kg

DRUGS (4)
  1. INDOMETHACIN [Suspect]
     Active Substance: INDOMETHACIN
     Indication: Rheumatoid arthritis
     Dosage: 50 MG, 2X/DAY
     Route: 048
     Dates: start: 20200116, end: 20250209
  2. INDOMETHACIN [Suspect]
     Active Substance: INDOMETHACIN
     Dosage: UNK
     Dates: end: 2022
  3. METOPROLOL [Concomitant]
     Active Substance: METOPROLOL
     Indication: Cardiac disorder
     Dosage: 1/2 TABLET DAILY
  4. OXYBUTYNIN [Concomitant]
     Active Substance: OXYBUTYNIN
     Indication: Bladder disorder
     Dosage: 5 MG, 2X/DAY

REACTIONS (2)
  - Perforated ulcer [Recovered/Resolved with Sequelae]
  - Expired product administered [Unknown]

NARRATIVE: CASE EVENT DATE: 20250209
